FAERS Safety Report 6597783-1 (Version None)
Quarter: 2010Q1

REPORT INFORMATION
  Report Type: 
  Country: None (occurrence: None)
  Receive Date: 20100216
  Receipt Date: 20100204
  Transmission Date: 20100710
  Serious: Yes (Hospitalization)
  Sender: FDA-Public Use
  Company Number: 2010000685

PATIENT
  Age: 52 Year
  Sex: Female

DRUGS (9)
  1. NUVIGIL [Suspect]
     Indication: SLEEP APNOEA SYNDROME
     Dosage: 150 MG (150 MG,1 IN 1 D),ORAL
     Route: 048
     Dates: start: 20090129, end: 20100201
  2. NOVOLOG [Concomitant]
  3. JANUVIA (SITAGLIPTIN PHOSPHATE) (TABLET) [Concomitant]
  4. ZOCOR [Concomitant]
  5. PREVACID [Concomitant]
  6. MICARDIS HCT [Concomitant]
  7. ACETYLSALICYLIC ACID SRT [Concomitant]
  8. REQUIP (ROPINIROLE HYDROCHLORIDE)(TABLET) [Concomitant]
  9. XANAX [Concomitant]

REACTIONS (3)
  - CHEST PAIN [None]
  - DYSPNOEA [None]
  - LEFT VENTRICULAR END-DIASTOLIC PRESSURE INCREASED [None]
